FAERS Safety Report 5603880-7 (Version None)
Quarter: 2008Q1

REPORT INFORMATION
  Report Type: 
  Country: None (occurrence: None)
  Receive Date: 20080125
  Receipt Date: 20080125
  Transmission Date: 20080703
  Serious: Yes (Hospitalization)
  Sender: FDA-Public Use
  Company Number: None

PATIENT
  Sex: Male
  Weight: 104 kg

DRUGS (3)
  1. CYTARABINE [Suspect]
     Dosage: 34400 MG
     Dates: end: 20080107
  2. ETOPOSIDE [Suspect]
     Dosage: 3552 MG
     Dates: end: 20080108
  3. RITUXIMAB (MOAB C2B8 ANTI CD20, CHIMERIC) [Suspect]
     Dosage: 1620 MG
     Dates: end: 20080114

REACTIONS (4)
  - ABDOMINAL PAIN [None]
  - BLOOD CULTURE POSITIVE [None]
  - EPISTAXIS [None]
  - STAPHYLOCOCCAL INFECTION [None]
